FAERS Safety Report 6381461-8 (Version None)
Quarter: 2009Q3

REPORT INFORMATION
  Report Type: 
  Country: None (occurrence: None)
  Receive Date: 20090929
  Receipt Date: 20090925
  Transmission Date: 20100115
  Serious: Yes (Hospitalization)
  Sender: FDA-Public Use
  Company Number: US-GILEAD-2009-0024465

PATIENT
  Sex: Female

DRUGS (11)
  1. LETAIRIS [Suspect]
     Indication: PULMONARY ARTERIAL HYPERTENSION
     Route: 048
  2. REVATIO [Concomitant]
  3. TORSEMIDE [Concomitant]
  4. ASMANEX TWISTHALER [Concomitant]
  5. SPIRIVA [Concomitant]
  6. SIMVASTATIN [Concomitant]
  7. OMEPRAZOLE [Concomitant]
  8. LUNESTA [Concomitant]
  9. LANTUS [Concomitant]
  10. HUMALOG [Concomitant]
  11. TYLENOL W/ CODEINE [Concomitant]

REACTIONS (1)
  - CEREBROVASCULAR ACCIDENT [None]
